FAERS Safety Report 22144656 (Version 1)
Quarter: 2023Q1

REPORT INFORMATION
  Report Type: Report from Study
  Country: MX (occurrence: MX)
  Receive Date: 20230328
  Receipt Date: 20230328
  Transmission Date: 20230418
  Serious: Yes (Hospitalization, Disabling, Other)
  Sender: FDA-Public Use
  Company Number: MX-BRISTOL-MYERS SQUIBB COMPANY-2023-043102

PATIENT
  Age: 39 Year
  Sex: Female
  Weight: 58 kg

DRUGS (7)
  1. NIVOLUMAB [Suspect]
     Active Substance: NIVOLUMAB
     Indication: Renal cell carcinoma
     Dosage: MG
     Route: 042
     Dates: start: 20221124, end: 20221124
  2. NIVOLUMAB [Suspect]
     Active Substance: NIVOLUMAB
     Dosage: MG
     Route: 042
     Dates: start: 20230302, end: 20230302
  3. ACETAMINOPHEN [Concomitant]
     Active Substance: ACETAMINOPHEN
     Indication: Product used for unknown indication
     Dosage: EVERY 8 HOURS
     Route: 048
     Dates: start: 2021
  4. FERROUS FUMARATE [Concomitant]
     Active Substance: FERROUS FUMARATE
     Indication: Product used for unknown indication
     Dosage: EVERY 24 HOURS
     Route: 048
     Dates: start: 2021
  5. FOLIC ACID [Concomitant]
     Active Substance: FOLIC ACID
     Indication: Product used for unknown indication
     Dosage: EVERY 24 HOURS
     Route: 048
     Dates: start: 2021
  6. VITAMIN B COMPLEX [Concomitant]
     Active Substance: CYANOCOBALAMIN\DEXPANTHENOL\NIACINAMIDE\PYRIDOXINE HYDROCHLORIDE\RIBOFLAVIN 5^-PHOSPHATE SODIUM\THIA
     Indication: Product used for unknown indication
     Dosage: 1 UNIT NOT SPECIFIED, EVERY 24 HOURS
     Route: 048
     Dates: start: 20221125
  7. KETOROLAC [Concomitant]
     Active Substance: KETOROLAC TROMETHAMINE
     Indication: Adverse event
     Dosage: EVERY 8 HOURS
     Route: 048
     Dates: start: 20221125

REACTIONS (1)
  - Hyperglycaemia [Not Recovered/Not Resolved]

NARRATIVE: CASE EVENT DATE: 20230315
